FAERS Safety Report 7454016-1 (Version None)
Quarter: 2011Q2

REPORT INFORMATION
  Report Type: 
  Country: None (occurrence: None)
  Receive Date: 20110502
  Receipt Date: 20110425
  Transmission Date: 20111010
  Serious: Yes (Hospitalization)
  Sender: FDA-Public Use
  Company Number: JP-AMGEN-JPNCT2011018601

PATIENT
  Age: 80 Year
  Sex: Male
  Weight: 54 kg

DRUGS (12)
  1. IRINOTECAN HCL [Concomitant]
     Indication: COLORECTAL CANCER
     Route: 041
     Dates: start: 20101213
  2. LEVOFOLINATE [Concomitant]
     Route: 041
     Dates: start: 20110214, end: 20110215
  3. LEVOFOLINATE [Concomitant]
     Indication: COLORECTAL CANCER
     Route: 041
     Dates: start: 20101213, end: 20110130
  4. PANITUMUMAB [Suspect]
     Indication: COLORECTAL CANCER
     Dosage: UNK UNK, Q2WK
     Route: 041
     Dates: start: 20101213
  5. FLUOROURACIL [Concomitant]
     Indication: COLORECTAL CANCER
     Route: 040
     Dates: start: 20101213, end: 20110214
  6. ELPLAT [Concomitant]
     Route: 041
     Dates: start: 20110131, end: 20110131
  7. ELPLAT [Concomitant]
     Route: 041
     Dates: start: 20110214, end: 20110214
  8. CRESTOR [Concomitant]
     Dosage: UNK
     Route: 048
  9. FLUOROURACIL [Concomitant]
     Route: 041
     Dates: start: 20101213, end: 20110213
  10. FLUOROURACIL [Concomitant]
     Route: 041
     Dates: start: 20110214, end: 20110215
  11. LEVOFOLINATE [Concomitant]
     Route: 041
     Dates: start: 20110131, end: 20110201
  12. ELPLAT [Concomitant]
     Indication: COLORECTAL CANCER
     Route: 041
     Dates: start: 20101213, end: 20110130

REACTIONS (3)
  - INTERSTITIAL LUNG DISEASE [None]
  - BONE MARROW FAILURE [None]
  - RASH [None]
